FAERS Safety Report 23242338 (Version 2)
Quarter: 2024Q1

REPORT INFORMATION
  Report Type: Spontaneous
  Country: US (occurrence: US)
  Receive Date: 20231129
  Receipt Date: 20240223
  Transmission Date: 20240410
  Serious: No
  Sender: FDA-Public Use
  Company Number: US-MYLANLABS-2023M1124104

PATIENT
  Sex: Male
  Weight: 65.77 kg

DRUGS (7)
  1. SEMGLEE (INSULIN GLARGINE-YFGN) [Suspect]
     Active Substance: INSULIN GLARGINE-YFGN
     Indication: Type 2 diabetes mellitus
     Dosage: 25 INTERNATIONAL UNIT, QD
     Route: 058
  2. DEVICE [Suspect]
     Active Substance: DEVICE
     Indication: Type 2 diabetes mellitus
  3. Alphagam p ophthalmic solution 0.15% [Concomitant]
     Indication: Open angle glaucoma
     Dosage: UNK
     Route: 065
  4. LUMIGAN [Concomitant]
     Active Substance: BIMATOPROST
     Indication: Open angle glaucoma
     Dosage: UNK
     Route: 065
  5. REMERON [Concomitant]
     Active Substance: MIRTAZAPINE
     Indication: Depression
     Dosage: UNK, QD
     Route: 065
  6. TYLENOL [Concomitant]
     Active Substance: ACETAMINOPHEN
     Indication: Arthritis
     Dosage: UNK
     Route: 065
  7. HUMALOG [Concomitant]
     Active Substance: INSULIN LISPRO
     Dosage: UNK
     Route: 065

REACTIONS (6)
  - Hypertension [Unknown]
  - Heart rate increased [Unknown]
  - Weight abnormal [Unknown]
  - Vision blurred [Unknown]
  - Drug ineffective [Unknown]
  - Product dose omission issue [Unknown]
